FAERS Safety Report 12803042 (Version 1)
Quarter: 2016Q4

REPORT INFORMATION
  Report Type: Spontaneous
  Country: US (occurrence: US)
  Receive Date: 20161003
  Receipt Date: 20161003
  Transmission Date: 20170207
  Serious: Yes (Hospitalization, Disabling, Other)
  Sender: FDA-Public Use
  Company Number: PHEH2016US024726

PATIENT
  Age: 25 Year
  Sex: Female
  Weight: 96 kg

DRUGS (13)
  1. ZOFRAN [Suspect]
     Active Substance: ONDANSETRON HYDROCHLORIDE
     Indication: NAUSEA
     Dosage: 8 MG, QD
     Route: 048
     Dates: start: 20160821
  2. CIPRO [Concomitant]
     Active Substance: CIPROFLOXACIN HYDROCHLORIDE
     Indication: PRODUCT USED FOR UNKNOWN INDICATION
     Dosage: 1 DF, BID
     Route: 048
     Dates: start: 20160821
  3. PRILOCAINE [Concomitant]
     Active Substance: PRILOCAINE
     Indication: PAIN
     Dosage: UNK
     Route: 065
  4. CIPRO [Concomitant]
     Active Substance: CIPROFLOXACIN HYDROCHLORIDE
     Indication: PYREXIA
  5. DIMECAINA//LIDOCAINE [Concomitant]
     Indication: PAIN
     Dosage: UNK
     Route: 065
     Dates: start: 20160821
  6. MORPHINE [Concomitant]
     Active Substance: MORPHINE
     Indication: PAIN
     Dosage: UNK  (EVERY 4 HRS AS NEEDED)
     Route: 048
     Dates: start: 20160821
  7. VOTRIENT [Suspect]
     Active Substance: PAZOPANIB HYDROCHLORIDE
     Indication: SOFT TISSUE SARCOMA
     Dosage: 200 MG, UNK
     Route: 048
     Dates: start: 20160821
  8. POTASSIUM CHLORIDE. [Concomitant]
     Active Substance: POTASSIUM CHLORIDE
     Indication: BLOOD POTASSIUM DECREASED
     Dosage: 1 MG, QD
     Route: 048
     Dates: start: 20160821
  9. VFEND [Concomitant]
     Active Substance: VORICONAZOLE
     Indication: PRODUCT USED FOR UNKNOWN INDICATION
     Dosage: 1 DF, QD ()EVERY 12 HRS FOR 15 DAYS)
     Route: 048
     Dates: start: 20160821
  10. PHENERGAN [Concomitant]
     Active Substance: PROMETHAZINE HYDROCHLORIDE
     Indication: NAUSEA
     Dosage: 1 DF,(EVERY 6 HRS AS NEEDED)
     Route: 048
     Dates: start: 20160821
  11. VFEND [Concomitant]
     Active Substance: VORICONAZOLE
     Indication: PYREXIA
  12. VFEND [Concomitant]
     Active Substance: VORICONAZOLE
     Indication: CANDIDA INFECTION
  13. LORAZEPAM. [Concomitant]
     Active Substance: LORAZEPAM
     Indication: ANXIETY
     Dosage: 1 DF, (EVERY 4 HRS AS NEEDED)
     Route: 048

REACTIONS (8)
  - Nausea [Recovered/Resolved]
  - Lymph node palpable [Unknown]
  - Neck pain [Recovering/Resolving]
  - Pyrexia [Unknown]
  - Dry skin [Unknown]
  - Candida infection [Unknown]
  - Pain in extremity [Recovering/Resolving]
  - Skin warm [Unknown]

NARRATIVE: CASE EVENT DATE: 20160821
